FAERS Safety Report 6339963-6 (Version None)
Quarter: 2009Q3

REPORT INFORMATION
  Report Type: 
  Country: None (occurrence: None)
  Receive Date: 20090903
  Receipt Date: 20090825
  Transmission Date: 20100115
  Serious: Yes (Hospitalization)
  Sender: FDA-Public Use
  Company Number: AU-MYLANLABS-2009S1015102

PATIENT
  Age: 48 Year
  Sex: Male

DRUGS (3)
  1. POSACONAZOLE [Interacting]
     Indication: ASPERGILLOMA
  2. TOPIRAMATE [Suspect]
     Indication: EPILEPSY
  3. VALPROATE SODIUM [Concomitant]

REACTIONS (2)
  - DRUG INTERACTION [None]
  - ENCEPHALOPATHY [None]
